FAERS Safety Report 8548622-0 (Version None)
Quarter: 2012Q3

REPORT INFORMATION
  Report Type: 
  Country: None (occurrence: None)
  Receive Date: 20120730
  Receipt Date: 20120718
  Transmission Date: 20120928
  Serious: Yes (Hospitalization)
  Sender: FDA-Public Use
  Company Number: US-BAYER-2012-018836

PATIENT
  Age: 41 Year
  Sex: Female
  Weight: 74.83 kg

DRUGS (4)
  1. IBUPROFEN [Concomitant]
     Dosage: UNK
     Dates: start: 20020101
  2. YAZ [Suspect]
     Indication: PREMENSTRUAL SYNDROME
     Dosage: UNK
     Dates: start: 20090401, end: 20090518
  3. YAZ [Suspect]
  4. EXCEDRIN [ACETYLSALICYLIC ACID,CAFFEINE,PARACETAMOL] [Concomitant]
     Dosage: UNK
     Dates: start: 20020101

REACTIONS (4)
  - EMOTIONAL DISTRESS [None]
  - PAIN [None]
  - CEREBROVASCULAR ACCIDENT [None]
  - APHASIA [None]
